FAERS Safety Report 5512933-3 (Version None)
Quarter: 2007Q4

REPORT INFORMATION
  Report Type: 
  Country: None (occurrence: None)
  Receive Date: 20071112
  Receipt Date: 20071106
  Transmission Date: 20080405
  Serious: Yes (Life-Threatening, Hospitalization)
  Sender: FDA-Public Use
  Company Number: DE-BRISTOL-MYERS SQUIBB COMPANY-13851175

PATIENT
  Age: 63 Year
  Sex: Male

DRUGS (6)
  1. CETUXIMAB [Suspect]
     Indication: NON-SMALL CELL LUNG CANCER
     Dosage: RESTARTED ON 04-JUL-2007
     Route: 042
     Dates: start: 20070620, end: 20070704
  2. CARBOPLATIN [Suspect]
     Indication: NON-SMALL CELL LUNG CANCER
     Dosage: RESTARTED ON 04-JUL-2007
     Route: 042
     Dates: start: 20070620, end: 20070704
  3. DOCETAXEL [Suspect]
     Indication: NON-SMALL CELL LUNG CANCER
     Dosage: RESTARTED FROM 04-JUL-2007
     Route: 042
     Dates: start: 20070620, end: 20070704
  4. METOPROLOL SUCCINATE [Concomitant]
     Indication: HYPERTENSION
     Route: 048
  5. DELIX PLUS [Concomitant]
     Indication: HYPERTENSION
     Route: 048
  6. NOVALGIN [Concomitant]
     Indication: PAIN
     Route: 048
     Dates: start: 20070709

REACTIONS (2)
  - DYSPNOEA [None]
  - PNEUMOTHORAX [None]
